FAERS Safety Report 8922686 (Version 1)
Quarter: 2012Q4

REPORT INFORMATION
  Report Type: 
  Country: US (occurrence: US)
  Receive Date: 20121123
  Receipt Date: 20121123
  Transmission Date: 20130627
  Serious: No
  Sender: FDA-Public Use
  Company Number: US-PFIZER INC-2012287925

PATIENT
  Sex: Female

DRUGS (1)
  1. ZYVOX [Suspect]
     Indication: INFECTION MRSA
     Dosage: 600 mg, BID
     Route: 048

REACTIONS (4)
  - Food interaction [Unknown]
  - Vomiting [Unknown]
  - Headache [Unknown]
  - Vision blurred [Unknown]
